FAERS Safety Report 10886988 (Version 4)
Quarter: 2015Q3

REPORT INFORMATION
  Report Type: Spontaneous
  Country: US (occurrence: US)
  Receive Date: 20150304
  Receipt Date: 20150928
  Transmission Date: 20151125
  Serious: No
  Sender: FDA-Public Use
  Company Number: US-PFIZER INC-2015076062

PATIENT
  Age: 75 Year
  Sex: Male
  Weight: 73 kg

DRUGS (2)
  1. PRAVASTATIN [Concomitant]
     Active Substance: PRAVASTATIN\PRAVASTATIN SODIUM
     Dosage: UNK
  2. SUTENT [Suspect]
     Active Substance: SUNITINIB MALATE
     Indication: METASTATIC RENAL CELL CARCINOMA
     Dosage: 50 MG, CYCLIC (28 DAYS ON, 14 DAYS OFF)
     Route: 048
     Dates: start: 20140917

REACTIONS (12)
  - Scab [Recovered/Resolved]
  - Peripheral swelling [Recovered/Resolved]
  - Platelet count decreased [Not Recovered/Not Resolved]
  - Erythema [Recovered/Resolved]
  - Pain in extremity [Recovering/Resolving]
  - Skin exfoliation [Recovered/Resolved]
  - Red blood cell count decreased [Unknown]
  - Dysgeusia [Recovering/Resolving]
  - White blood cell count decreased [Unknown]
  - Noninfective gingivitis [Recovered/Resolved]
  - Pain [Unknown]
  - Blister [Recovered/Resolved]
